FAERS Safety Report 6501247-0 (Version None)
Quarter: 2009Q4

REPORT INFORMATION
  Report Type: 
  Country: None (occurrence: None)
  Receive Date: 20091216
  Receipt Date: 20091026
  Transmission Date: 20100525
  Serious: No
  Sender: FDA-Public Use
  Company Number: A0813341A

PATIENT
  Age: 66 Year
  Sex: Female

DRUGS (1)
  1. COMMIT [Suspect]
     Dates: start: 20091023, end: 20091026

REACTIONS (4)
  - CHOKING SENSATION [None]
  - FATIGUE [None]
  - THROAT TIGHTNESS [None]
  - TREMOR [None]
